FAERS Safety Report 9385944 (Version 1)
Quarter: 2013Q3

REPORT INFORMATION
  Report Type: Spontaneous
  Country: KZ (occurrence: KZ)
  Receive Date: 20130705
  Receipt Date: 20130705
  Transmission Date: 20140515
  Serious: Yes (Life-Threatening, Hospitalization, Disabling, Other)
  Sender: FDA-Public Use
  Company Number: KZ-MERCK-1306KAZ014397

PATIENT
  Age: 40 Year
  Sex: Male

DRUGS (5)
  1. PEG-INTRON [Suspect]
     Indication: CHRONIC HEPATITIS C
     Dosage: TOTALLY DAILY DOSE 120 MKG
     Dates: start: 20130123, end: 20130610
  2. REBETOL [Suspect]
     Indication: CHRONIC HEPATITIS C
     Dosage: TOTAL DAILY DOSE 1200 MG
     Route: 048
     Dates: start: 20130123, end: 20130610
  3. ELOCOM [Suspect]
     Indication: DERMATITIS
     Dosage: 2 TIMES LOCALY
     Route: 061
     Dates: start: 20130525, end: 20130610
  4. STINGING NETTLE [Suspect]
     Indication: THROMBOCYTOPENIA
     Dosage: 3 TABLESPOONS
     Route: 048
     Dates: start: 20130531, end: 20130610
  5. METHYLURACIL [Suspect]
     Indication: LEUKOPENIA
     Dosage: TOTALLY DAILY DOSE 3 TABLETS
     Route: 048
     Dates: start: 20130531, end: 20130610

REACTIONS (8)
  - Anaemia [Recovering/Resolving]
  - Leukopenia [Recovering/Resolving]
  - Thrombocytopenia [Recovering/Resolving]
  - Pyrexia [Recovering/Resolving]
  - Urticaria [Recovering/Resolving]
  - Asthenia [Recovering/Resolving]
  - Chills [Recovering/Resolving]
  - Abasia [Recovering/Resolving]
